FAERS Safety Report 8590187-1 (Version None)
Quarter: 2012Q3

REPORT INFORMATION
  Report Type: 
  Country: None (occurrence: None)
  Receive Date: 20120813
  Receipt Date: 20120803
  Transmission Date: 20120928
  Serious: Yes (Hospitalization, Other)
  Sender: FDA-Public Use
  Company Number: US-ALEXION PHARMACEUTICALS INC.-A201201228

PATIENT
  Sex: Female

DRUGS (1)
  1. SOLIRIS [Suspect]
     Indication: PAROXYSMAL NOCTURNAL HAEMOGLOBINURIA
     Dosage: UNK
     Route: 042

REACTIONS (13)
  - HAEMOGLOBIN DECREASED [None]
  - DYSPNOEA [None]
  - CHEST PAIN [None]
  - SYNCOPE [None]
  - INSOMNIA [None]
  - BACK PAIN [None]
  - DYSPHAGIA [None]
  - FATIGUE [None]
  - ABDOMINAL PAIN [None]
  - PAIN [None]
  - TRANSFUSION REACTION [None]
  - NAUSEA [None]
  - HEADACHE [None]
